FAERS Safety Report 6621517-5 (Version None)
Quarter: 2010Q1

REPORT INFORMATION
  Report Type: 
  Country: None (occurrence: None)
  Receive Date: 20100223
  Receipt Date: 20091120
  Transmission Date: 20100710
  Serious: No
  Sender: FDA-Public Use
  Company Number: 8054993

PATIENT
  Sex: Male
  Weight: 77.1 kg

DRUGS (5)
  1. CERTOLIZUMAB PEGOL (UCB, INC) [Suspect]
     Indication: COLITIS
     Dosage: SUBCUTANEOUS
     Route: 058
     Dates: start: 20090601
  2. CERTOLIZUMAB PEGOL (UCB, INC) [Suspect]
     Indication: CROHN'S DISEASE
     Dosage: SUBCUTANEOUS
     Route: 058
     Dates: start: 20090601
  3. ENALAPRIL MALEATE [Concomitant]
  4. CALCIUM BLOCKER [Concomitant]
  5. ZANTAC [Concomitant]

REACTIONS (6)
  - ABDOMINAL DISTENSION [None]
  - ASTHENIA [None]
  - DYSPEPSIA [None]
  - HUNGER [None]
  - LETHARGY [None]
  - LYMPHADENOPATHY [None]
